FAERS Safety Report 9713393 (Version 2)
Quarter: 2013Q4

REPORT INFORMATION
  Report Type: Spontaneous
  Country: VE (occurrence: VE)
  Receive Date: 20131126
  Receipt Date: 20131126
  Transmission Date: 20140711
  Serious: Yes (Death)
  Sender: FDA-Public Use
  Company Number: VE-PFIZER INC-2011198841

PATIENT
  Age: 81 Year
  Sex: Male

DRUGS (1)
  1. CADUET [Suspect]
     Dosage: [AMLODIPINE BESYLATE 5 MG ]/[ATORVASTATIN CALCIUM 40 MG], UNK

REACTIONS (1)
  - Death [Fatal]
